FAERS Safety Report 24038351 (Version 1)
Quarter: 2024Q3

REPORT INFORMATION
  Report Type: Spontaneous
  Country: US (occurrence: US)
  Receive Date: 20240702
  Receipt Date: 20240702
  Transmission Date: 20241016
  Serious: No
  Sender: RANBAXY
  Company Number: US-SUN PHARMACEUTICAL INDUSTRIES LTD-2023R1-417835

PATIENT
  Sex: Female

DRUGS (1)
  1. ISOTRETINOIN [Suspect]
     Active Substance: ISOTRETINOIN
     Indication: Skin disorder
     Dosage: UNK, QD
     Route: 065
     Dates: start: 20231107

REACTIONS (3)
  - Manufacturing stability testing issue [Unknown]
  - Poor quality product administered [Unknown]
  - Product physical issue [Unknown]
